FAERS Safety Report 21023102 (Version 2)
Quarter: 2022Q3

REPORT INFORMATION
  Report Type: Spontaneous
  Country: US (occurrence: US)
  Receive Date: 20220629
  Receipt Date: 20220718
  Transmission Date: 20221026
  Serious: Yes (Other)
  Sender: FDA-Public Use
  Company Number: US-PFIZER INC-PV202200012006

PATIENT
  Age: 72 Year
  Sex: Female

DRUGS (1)
  1. XELJANZ XR [Suspect]
     Active Substance: TOFACITINIB CITRATE
     Dosage: 11 MG

REACTIONS (4)
  - Blindness [Not Recovered/Not Resolved]
  - Gait inability [Not Recovered/Not Resolved]
  - Arthritis [Not Recovered/Not Resolved]
  - Mobility decreased [Not Recovered/Not Resolved]
